FAERS Safety Report 8617420-1 (Version None)
Quarter: 2012Q3

REPORT INFORMATION
  Report Type: 
  Country: None (occurrence: None)
  Receive Date: 20120823
  Receipt Date: 20120821
  Transmission Date: 20120928
  Serious: Yes (Death)
  Sender: FDA-Public Use
  Company Number: JP-009507513-1201USA01989

PATIENT

DRUGS (9)
  1. JANUVIA [Suspect]
     Indication: TYPE 2 DIABETES MELLITUS
     Dosage: 50 MG, QD
     Route: 048
     Dates: start: 20110106, end: 20110301
  2. BISOLVON [Concomitant]
     Indication: BRONCHITIS CHRONIC
     Dosage: 4 MG, TID
     Route: 048
  3. MEPTIN [Concomitant]
     Dosage: DAILY DOSE UNKNOWN
     Route: 055
     Dates: start: 20081114, end: 20110604
  4. HALCION [Concomitant]
     Indication: INSOMNIA
     Dosage: 0.2 MG, QD
     Route: 048
  5. THEO-DUR [Concomitant]
     Indication: ASTHMA
     Dosage: 100 MG, TID
     Route: 048
  6. MEPTIN [Concomitant]
     Indication: ASTHMA
     Dosage: UNK UNK, BID
     Route: 048
  7. PREDNISOLONE [Concomitant]
     Indication: ASTHMA
     Dosage: 5 MG, QD
     Route: 048
     Dates: start: 20081219
  8. FAMOTIDINE [Concomitant]
     Indication: GASTRITIS
     Dosage: 10 MG, QD
     Route: 048
     Dates: start: 20081219
  9. ADVAIR DISKUS 100/50 [Concomitant]
     Indication: ASTHMA
     Dosage: 2 DF, QD
     Route: 055

REACTIONS (1)
  - DEATH [None]
